FAERS Safety Report 26216041 (Version 1)
Quarter: 2025Q4

REPORT INFORMATION
  Report Type: Spontaneous
  Country: LK (occurrence: LK)
  Receive Date: 20251231
  Receipt Date: 20251231
  Transmission Date: 20260118
  Serious: Yes (Other)
  Sender: BAUSCH AND LOMB
  Company Number: LK-BAUSCH-BH-2025-022979

PATIENT
  Age: 26 Year
  Sex: Female

DRUGS (2)
  1. AZATHIOPRINE [Suspect]
     Active Substance: AZATHIOPRINE
     Indication: Systemic lupus erythematosus
     Route: 065
  2. HYDROXYCHLOROQUINE [Suspect]
     Active Substance: HYDROXYCHLOROQUINE
     Indication: Systemic lupus erythematosus
     Route: 065

REACTIONS (3)
  - Seizure [Recovered/Resolved]
  - Chorea [Recovered/Resolved]
  - Abnormal behaviour [Recovered/Resolved]
